FAERS Safety Report 4642674-6 (Version None)
Quarter: 2005Q2

REPORT INFORMATION
  Report Type: 
  Country: None (occurrence: None)
  Receive Date: 20050422
  Receipt Date: 20050105
  Transmission Date: 20051028
  Serious: Yes (Hospitalization, Other)
  Sender: FDA-Public Use
  Company Number: PHFR2005GB00480

PATIENT
  Age: 60 Year
  Sex: Female

DRUGS (5)
  1. CLOZARIL [Suspect]
     Indication: SCHIZOPHRENIA
     Dosage: UNK, UNK
     Route: 048
     Dates: start: 20041206, end: 20050104
  2. CLOZARIL [Suspect]
     Dates: start: 20050107, end: 20050107
  3. MIRTAZAPINE [Concomitant]
     Dosage: 45MG/DAY
     Route: 048
  4. PRAVASTATIN [Concomitant]
     Dosage: 30MG/DAY
     Route: 048
  5. QUETIAPINE [Concomitant]
     Dosage: 100MG/DAY
     Route: 065

REACTIONS (9)
  - EOSINOPHIL COUNT INCREASED [None]
  - HYPOAESTHESIA [None]
  - HYPOTENSION [None]
  - INFECTION [None]
  - ISCHAEMIC LIMB PAIN [None]
  - MEDICATION ERROR [None]
  - PAIN [None]
  - PERIPHERAL EMBOLISM [None]
  - THROMBOSIS [None]
